FAERS Safety Report 14556578 (Version 1)
Quarter: 2018Q1

REPORT INFORMATION
  Report Type: Spontaneous
  Country: US (occurrence: US)
  Receive Date: 20180219
  Receipt Date: 20180219
  Transmission Date: 20180509
  Serious: No
  Sender: FDA-Public Use
  Company Number: None

PATIENT
  Age: 91 Year
  Sex: Female

DRUGS (12)
  1. CELEXA [Concomitant]
     Active Substance: CITALOPRAM HYDROBROMIDE
  2. PROCRIT [Suspect]
     Active Substance: ERYTHROPOIETIN
     Indication: SPLEEN DISORDER
     Dosage: 40,000 UNITS WEEKLY SUBCUTANEOUSLY
     Route: 058
     Dates: start: 20180119
  3. ELIQUIS [Concomitant]
     Active Substance: APIXABAN
  4. NEURONTIN [Concomitant]
     Active Substance: GABAPENTIN
  5. FOLIC ACID. [Concomitant]
     Active Substance: FOLIC ACID
  6. NORCO [Concomitant]
     Active Substance: ACETAMINOPHEN\HYDROCODONE BITARTRATE
  7. PROCRIT [Suspect]
     Active Substance: ERYTHROPOIETIN
     Indication: PROCEDURAL COMPLICATION
     Dosage: 40,000 UNITS WEEKLY SUBCUTANEOUSLY
     Route: 058
     Dates: start: 20180119
  8. VITAMIN C [Concomitant]
     Active Substance: ASCORBIC ACID
  9. PANTOPRAZOLE SODIUM. [Concomitant]
     Active Substance: PANTOPRAZOLE SODIUM
  10. PROCRIT [Suspect]
     Active Substance: ERYTHROPOIETIN
     Indication: APLASTIC ANAEMIA
     Dosage: 40,000 UNITS WEEKLY SUBCUTANEOUSLY
     Route: 058
     Dates: start: 20180119
  11. ZOLPIDEM TARTRATE. [Concomitant]
     Active Substance: ZOLPIDEM TARTRATE
  12. NITRO-DUR [Concomitant]
     Active Substance: NITROGLYCERIN

REACTIONS (1)
  - Cerebrovascular accident [None]

NARRATIVE: CASE EVENT DATE: 20180216
